FAERS Safety Report 6822785-7 (Version None)
Quarter: 2010Q3

REPORT INFORMATION
  Report Type: 
  Country: None (occurrence: None)
  Receive Date: 20100708
  Receipt Date: 20100629
  Transmission Date: 20110219
  Serious: Yes (Hospitalization)
  Sender: FDA-Public Use
  Company Number: GB-ROCHE-712874

PATIENT
  Sex: Male
  Weight: 80 kg

DRUGS (3)
  1. BEVACIZUMAB [Suspect]
     Indication: GLIOBLASTOMA
     Dosage: FREQUENCY: Q2W
     Route: 042
     Dates: start: 20100401
  2. VITAMINE D [Concomitant]
  3. TEMOZOLOMIDE [Concomitant]
     Dosage: DOSE WAS INCREASED MONTHLY
     Dates: start: 20100401

REACTIONS (2)
  - BRAIN OEDEMA [None]
  - CONVULSION [None]
